FAERS Safety Report 23021823 (Version 2)
Quarter: 2023Q4

REPORT INFORMATION
  Report Type: Spontaneous
  Country: US (occurrence: US)
  Receive Date: 20231003
  Receipt Date: 20231019
  Transmission Date: 20240110
  Serious: Yes (Death)
  Sender: FDA-Public Use
  Company Number: US-PFIZER INC-202300308068

PATIENT
  Age: 41 Year
  Sex: Male
  Weight: 86.168 kg

DRUGS (3)
  1. LORBRENA [Suspect]
     Active Substance: LORLATINIB
     Indication: Non-small cell lung cancer stage IV
     Dosage: 50 MG, 1X/DAY
     Dates: start: 20230824, end: 20230901
  2. GABAPENTIN [Concomitant]
     Active Substance: GABAPENTIN
     Dosage: UNK
     Dates: start: 20221020, end: 20230901
  3. ZOLOFT [Concomitant]
     Active Substance: SERTRALINE HYDROCHLORIDE
     Dosage: UNK
     Dates: start: 20221020, end: 20230901

REACTIONS (2)
  - Completed suicide [Fatal]
  - Mental disorder [Unknown]

NARRATIVE: CASE EVENT DATE: 20230824
